FAERS Safety Report 8975714 (Version 2)
Quarter: 2013Q1

REPORT INFORMATION
  Report Type: Spontaneous
  Country: JP (occurrence: JP)
  Receive Date: 20121219
  Receipt Date: 20130219
  Transmission Date: 20140127
  Serious: Yes (Hospitalization)
  Sender: FDA-Public Use
  Company Number: PHHY2012JP116322

PATIENT
  Age: 1 Year
  Sex: Female
  Weight: 15 kg

DRUGS (8)
  1. NEORAL [Suspect]
     Indication: NEPHROTIC SYNDROME
     Dosage: 0.3 ML, QD
     Route: 048
     Dates: start: 20121127, end: 20121128
  2. NEORAL [Suspect]
     Dosage: 0.4 ML, QD
     Route: 048
     Dates: start: 20121129, end: 20121201
  3. NEORAL [Suspect]
     Dosage: 0.1 ML, QD
     Route: 048
     Dates: start: 20121205, end: 20121206
  4. NEORAL [Suspect]
     Dosage: 0.1 ML, QD
     Route: 048
     Dates: start: 20121211, end: 20121213
  5. LIPITOR [Concomitant]
     Indication: HYPERLIPIDAEMIA
     Dosage: 2.5 MG, UNK
     Route: 048
     Dates: start: 20121127
  6. SEPAMIT-R [Concomitant]
     Indication: HYPERTENSION
     Dosage: 10 MG, UNK
     Route: 048
  7. PREDONINE [Concomitant]
     Indication: NEPHROTIC SYNDROME
     Dosage: 10 MG, UNK
     Dates: start: 20121126
  8. LASIX [Concomitant]
     Indication: OLIGURIA
     Dosage: 120 MG, UNK
     Dates: start: 20121127

REACTIONS (4)
  - Renal failure acute [Not Recovered/Not Resolved]
  - Anuria [Not Recovered/Not Resolved]
  - Blood creatinine increased [Not Recovered/Not Resolved]
  - Hypertension [Recovering/Resolving]
